FAERS Safety Report 5332715-5 (Version None)
Quarter: 2007Q2

REPORT INFORMATION
  Report Type: 
  Country: None (occurrence: None)
  Receive Date: 20070521
  Receipt Date: 20070510
  Transmission Date: 20071010
  Serious: Yes (Other)
  Sender: FDA-Public Use
  Company Number: GXKR2007GB04224

PATIENT
  Age: 54 Year
  Sex: Female

DRUGS (4)
  1. RIFAMPICIN [Suspect]
     Dates: start: 20070410
  2. AMOXICILLIN [Concomitant]
  3. CLARITHROMYCIN [Concomitant]
  4. ENOXAPRIN (ENOXAPRIN, HEPARIN-FRACTION) [Concomitant]

REACTIONS (4)
  - GINGIVAL BLEEDING [None]
  - HAEMATURIA [None]
  - MELAENA [None]
  - THROMBOCYTOPENIA [None]
